FAERS Safety Report 23139077 (Version 1)
Quarter: 2023Q4

REPORT INFORMATION
  Report Type: Spontaneous
  Country: US (occurrence: US)
  Receive Date: 20231102
  Receipt Date: 20231102
  Transmission Date: 20240110
  Serious: No
  Sender: FDA-Public Use
  Company Number: US-ABBVIE-5472327

PATIENT
  Sex: Female
  Weight: 60.327 kg

DRUGS (1)
  1. SYNTHROID [Suspect]
     Active Substance: LEVOTHYROXINE SODIUM
     Indication: Hypothyroidism
     Dosage: START DATE TEXT: UNKNOWN?STOP DATE TEXT: OVER A YEAR AGO IN 2022
     Route: 048

REACTIONS (1)
  - Drug ineffective [Recovered/Resolved]
